FAERS Safety Report 7994225-6 (Version None)
Quarter: 2011Q4

REPORT INFORMATION
  Report Type: 
  Country: None (occurrence: None)
  Receive Date: 20111220
  Receipt Date: 20111208
  Transmission Date: 20120403
  Serious: Yes (Hospitalization, Other)
  Sender: FDA-Public Use
  Company Number: JP-JNJFOC-20111204943

PATIENT
  Age: 28 Year
  Sex: Male

DRUGS (4)
  1. REMICADE [Suspect]
     Indication: CROHN'S DISEASE
     Route: 042
     Dates: start: 20080925
  2. BIO-THREE [Concomitant]
     Route: 048
  3. REMICADE [Suspect]
     Route: 042
     Dates: start: 20110818
  4. PENTASA [Concomitant]
     Route: 048

REACTIONS (2)
  - PULMONARY TUBERCULOSIS [None]
  - LYMPH NODE TUBERCULOSIS [None]
